FAERS Safety Report 9798570 (Version 1)
Quarter: 2014Q1

REPORT INFORMATION
  Report Type: Spontaneous
  Country: US (occurrence: None)
  Receive Date: 20140102
  Receipt Date: 20140102
  Transmission Date: 20141002
  Serious: No
  Sender: FDA-Public Use
  Company Number: None

PATIENT
  Age: 23 Year
  Sex: Female
  Weight: 45.36 kg

DRUGS (1)
  1. RISPERIDONE 1MG [Suspect]
     Indication: SCHIZOPHRENIA, PARANOID TYPE
     Dosage: 1 TABLET  QHS/BEDTIME ORAL
     Route: 048
     Dates: start: 20120312, end: 20130423

REACTIONS (1)
  - Galactorrhoea [None]
